FAERS Safety Report 13187631 (Version 1)
Quarter: 2017Q1

REPORT INFORMATION
  Report Type: Spontaneous
  Country: US (occurrence: US)
  Receive Date: 20170206
  Receipt Date: 20170206
  Transmission Date: 20170428
  Serious: No
  Sender: FDA-Public Use
  Company Number: US-ASTRAZENECA-2017SE11314

PATIENT
  Age: 11 Year
  Sex: Male
  Weight: 47.6 kg

DRUGS (1)
  1. ANASTROZOLE. [Suspect]
     Active Substance: ANASTROZOLE
     Indication: PRECOCIOUS PUBERTY
     Dosage: DAILY, UNKNOWN
     Route: 048
     Dates: start: 201701

REACTIONS (2)
  - Pain in extremity [Unknown]
  - Product use issue [Unknown]

NARRATIVE: CASE EVENT DATE: 201701
